FAERS Safety Report 12609401 (Version 3)
Quarter: 2016Q3

REPORT INFORMATION
  Report Type: Spontaneous
  Country: GB (occurrence: GB)
  Receive Date: 20160801
  Receipt Date: 20160919
  Transmission Date: 20161109
  Serious: Yes (Death, Hospitalization, Other)
  Sender: FDA-Public Use
  Company Number: GB-BRISTOL-MYERS SQUIBB COMPANY-BMS-2016-059151

PATIENT
  Age: 71 Year
  Sex: Male

DRUGS (30)
  1. CARBOCISTEINE [Suspect]
     Active Substance: CARBOCYSTEINE
     Indication: PRODUCT USED FOR UNKNOWN INDICATION
     Dosage: 750 MG, QD
     Route: 065
  2. FERROUS SULFATE. [Suspect]
     Active Substance: FERROUS SULFATE
     Indication: PRODUCT USED FOR UNKNOWN INDICATION
     Dosage: 200 MG, QD
     Route: 065
  3. FERROUS SULFATE. [Suspect]
     Active Substance: FERROUS SULFATE
     Route: 065
  4. FOSTAIR [Suspect]
     Active Substance: BECLOMETHASONE\FORMOTEROL
     Indication: PRODUCT USED FOR UNKNOWN INDICATION
     Dosage: 2 DF, BID
     Route: 065
  5. IPRATROPIUM [Suspect]
     Active Substance: IPRATROPIUM
     Dosage: 500 MG, QD
     Route: 065
  6. LINAGLIPTIN [Suspect]
     Active Substance: LINAGLIPTIN
     Indication: PRODUCT USED FOR UNKNOWN INDICATION
     Dosage: 5 MG, QD
     Route: 065
  7. TAMSULOSIN [Suspect]
     Active Substance: TAMSULOSIN
     Route: 065
  8. TAZOCIN [Suspect]
     Active Substance: PIPERACILLIN SODIUM\TAZOBACTAM SODIUM
     Indication: CHRONIC OBSTRUCTIVE PULMONARY DISEASE
     Dosage: 13.5 G, QD
     Route: 042
  9. TIOTROPIUM [Suspect]
     Active Substance: TIOTROPIUM
     Route: 065
  10. METFORMIN HYDROCHLORIDE. [Suspect]
     Active Substance: METFORMIN HYDROCHLORIDE
     Indication: PRODUCT USED FOR UNKNOWN INDICATION
     Route: 065
  11. ITRACONAZOLE. [Suspect]
     Active Substance: ITRACONAZOLE
     Dosage: 200 MG, QD
     Route: 065
  12. SALBUTAMOL [Suspect]
     Active Substance: ALBUTEROL
     Indication: PRODUCT USED FOR UNKNOWN INDICATION
     Route: 065
  13. PARACETAMOL [Suspect]
     Active Substance: ACETAMINOPHEN
     Indication: PRODUCT USED FOR UNKNOWN INDICATION
     Dosage: UNK
     Route: 065
  14. DILTIAZEM HYDROCHLORIDE. [Suspect]
     Active Substance: DILTIAZEM HYDROCHLORIDE
     Indication: PRODUCT USED FOR UNKNOWN INDICATION
     Dosage: 180 MG, QD
     Route: 065
  15. LANSOPRAZOLE. [Suspect]
     Active Substance: LANSOPRAZOLE
     Dosage: 30 MG, QD
     Route: 065
  16. FOSTAIR [Suspect]
     Active Substance: BECLOMETHASONE\FORMOTEROL
     Route: 065
  17. TAMSULOSIN [Suspect]
     Active Substance: TAMSULOSIN
     Indication: PRODUCT USED FOR UNKNOWN INDICATION
     Dosage: 400 ?G, QD
     Route: 065
  18. TIOTROPIUM [Suspect]
     Active Substance: TIOTROPIUM
     Indication: PRODUCT USED FOR UNKNOWN INDICATION
     Route: 065
  19. CARBOCISTEINE [Suspect]
     Active Substance: CARBOCYSTEINE
     Dosage: 750 MG, QD
     Route: 065
  20. GLICLAZIDE [Suspect]
     Active Substance: GLICLAZIDE
     Dosage: 80 MG, QD
     Route: 065
  21. LANSOPRAZOLE. [Suspect]
     Active Substance: LANSOPRAZOLE
     Indication: PRODUCT USED FOR UNKNOWN INDICATION
     Dosage: 30 MG, QD
     Route: 065
  22. TAZOCIN [Suspect]
     Active Substance: PIPERACILLIN SODIUM\TAZOBACTAM SODIUM
     Indication: LOWER RESPIRATORY TRACT INFECTION
     Route: 042
  23. ASPIRIN. [Suspect]
     Active Substance: ASPIRIN
     Indication: PRODUCT USED FOR UNKNOWN INDICATION
     Dosage: 75 MG, QD
     Route: 065
  24. PRAVASTATIN SODIUM. [Suspect]
     Active Substance: PRAVASTATIN SODIUM
     Indication: PRODUCT USED FOR UNKNOWN INDICATION
     Dosage: 20 MG, QD
     Route: 065
  25. GLICLAZIDE [Suspect]
     Active Substance: GLICLAZIDE
     Indication: PRODUCT USED FOR UNKNOWN INDICATION
     Route: 065
  26. LINAGLIPTIN [Suspect]
     Active Substance: LINAGLIPTIN
     Dosage: 5 MG, QD
     Route: 065
  27. SALBUTAMOL [Suspect]
     Active Substance: ALBUTEROL
     Dosage: 5 MG, QD
     Route: 065
  28. TAZOCIN [Suspect]
     Active Substance: PIPERACILLIN SODIUM\TAZOBACTAM SODIUM
     Indication: RESPIRATORY FAILURE
     Route: 042
  29. IPRATROPIUM [Suspect]
     Active Substance: IPRATROPIUM
     Indication: PRODUCT USED FOR UNKNOWN INDICATION
     Route: 065
  30. ITRACONAZOLE. [Suspect]
     Active Substance: ITRACONAZOLE
     Indication: PRODUCT USED FOR UNKNOWN INDICATION
     Dosage: 200 MG, QD
     Route: 065

REACTIONS (4)
  - Malaise [Fatal]
  - Condition aggravated [Fatal]
  - Dyspnoea [Fatal]
  - Oxygen saturation decreased [Fatal]

NARRATIVE: CASE EVENT DATE: 20160530
